FAERS Safety Report 18216088 (Version 1)
Quarter: 2020Q3

REPORT INFORMATION
  Report Type: Spontaneous
  Country: US (occurrence: US)
  Receive Date: 20200901
  Receipt Date: 20200901
  Transmission Date: 20201103
  Serious: No
  Sender: FDA-Public Use
  Company Number: US-SA-2020SA227367

PATIENT

DRUGS (2)
  1. NOVOLOG [Concomitant]
     Active Substance: INSULIN ASPART
     Dosage: UNK
     Route: 065
  2. LANTUS [Suspect]
     Active Substance: INSULIN GLARGINE
     Indication: TYPE 2 DIABETES MELLITUS
     Dosage: 18 UNITS MORNING 22 UNITS IN THE NIGHT
     Route: 065
     Dates: start: 202005

REACTIONS (2)
  - Inappropriate schedule of product administration [Unknown]
  - Injury associated with device [Unknown]

NARRATIVE: CASE EVENT DATE: 202008
